FAERS Safety Report 4510890-X (Version None)
Quarter: 2004Q4

REPORT INFORMATION
  Report Type: 
  Country: None (occurrence: None)
  Receive Date: 20041124
  Receipt Date: 20041118
  Transmission Date: 20050328
  Serious: Yes (Life-Threatening, Hospitalization, Other)
  Sender: FDA-Public Use
  Company Number: US-MERCK-0411USA03159

PATIENT
  Age: 66 Year
  Sex: Female

DRUGS (3)
  1. VIOXX [Suspect]
     Indication: ARTHRITIS
     Route: 048
     Dates: start: 20000101, end: 20041001
  2. ZOCOR [Concomitant]
     Route: 048
  3. PROTONIX [Concomitant]
     Route: 065

REACTIONS (4)
  - ABDOMINAL INFECTION [None]
  - ARTHROPATHY [None]
  - CHOLELITHIASIS [None]
  - POSTOPERATIVE INFECTION [None]
